FAERS Safety Report 5194550-0 (Version None)
Quarter: 2006Q4

REPORT INFORMATION
  Report Type: 
  Country: None (occurrence: None)
  Receive Date: 20061221
  Receipt Date: 20061208
  Transmission Date: 20070319
  Serious: Yes (Hospitalization)
  Sender: FDA-Public Use
  Company Number: 15363

PATIENT
  Age: 73 Year
  Sex: Female
  Weight: 55 kg

DRUGS (3)
  1. VINCRISTINE [Suspect]
     Dosage: 1.4 MG/M2 Q3W IV
     Route: 042
     Dates: start: 20060706
  2. DOXORUBICIN HCL [Suspect]
     Dosage: 50 MG/M2 Q3W IV
     Route: 042
     Dates: start: 20060706
  3. CYCLOPHOSPHAMIDE [Suspect]
     Dosage: 750 MG/M2 Q3W IV
     Route: 042
     Dates: start: 20060706

REACTIONS (10)
  - ABDOMINAL DISTENSION [None]
  - ABDOMINAL PAIN [None]
  - BLOOD CALCIUM DECREASED [None]
  - BLOOD POTASSIUM DECREASED [None]
  - DEHYDRATION [None]
  - DIARRHOEA [None]
  - FEBRILE NEUTROPENIA [None]
  - GASTROENTERITIS [None]
  - HYPERCHLORAEMIA [None]
  - IMMUNOSUPPRESSION [None]
